FAERS Safety Report 7588336-7 (Version None)
Quarter: 2011Q3

REPORT INFORMATION
  Report Type: 
  Country: None (occurrence: None)
  Receive Date: 20110705
  Receipt Date: 20101116
  Transmission Date: 20111222
  Serious: Yes (Death, Other)
  Sender: FDA-Public Use
  Company Number: US-BAYER-200940105NA

PATIENT
  Age: 68 Year
  Sex: Female
  Weight: 73.016 kg

DRUGS (8)
  1. ATENOLOL [Concomitant]
     Dosage: 100 MG, QD
     Route: 048
  2. ACETYLSALICYLIC ACID SRT [Concomitant]
     Dosage: 162 MG, QD
     Route: 048
  3. INSULIN HUMULIN [Concomitant]
     Dosage: 25UNITS IN MORNING, 10UNITS IN EVENING
     Route: 058
  4. LIPITOR [Concomitant]
     Dosage: 20 MG, QD
     Route: 048
  5. TRASYLOL [Suspect]
     Indication: PRODUCT USED FOR UNKNOWN INDICATION
     Route: 042
     Dates: start: 20030101
  6. TRASYLOL [Suspect]
     Dosage: UNK
     Dates: start: 20000328
  7. VASERETIC [Concomitant]
     Dosage: UNK UNK, BID
     Route: 048
  8. CARDIZEM [Concomitant]
     Indication: ATRIAL TACHYCARDIA
     Dosage: 20 MG, ONCE
     Route: 042

REACTIONS (13)
  - DEATH [None]
  - RENAL IMPAIRMENT [None]
  - FEAR [None]
  - MULTI-ORGAN FAILURE [None]
  - RENAL INJURY [None]
  - RENAL FAILURE [None]
  - ANXIETY [None]
  - UNEVALUABLE EVENT [None]
  - INJURY [None]
  - EMOTIONAL DISTRESS [None]
  - STRESS [None]
  - PAIN [None]
  - ANHEDONIA [None]
